FAERS Safety Report 8702484 (Version 8)
Quarter: 2013Q3

REPORT INFORMATION
  Report Type: Report from Study
  Country: JP (occurrence: JP)
  Receive Date: 20120803
  Receipt Date: 20130910
  Transmission Date: 20140515
  Serious: Yes (Hospitalization, Other)
  Sender: FDA-Public Use
  Company Number: JP-VERTEX PHARMACEUTICAL INC.-AE-2012-011252

PATIENT
  Age: 58 Year
  Sex: Male

DRUGS (9)
  1. VX-950 (TELAPREVIR) [Suspect]
     Indication: CHRONIC HEPATITIS C
     Dosage: 2250 MG, QD
     Route: 048
     Dates: start: 20120621, end: 20120802
  2. REBETOL [Suspect]
     Indication: CHRONIC HEPATITIS C
     Dosage: 800 MG, QD
     Route: 048
     Dates: start: 20120621, end: 20120725
  3. REBETOL [Suspect]
     Dosage: 400 MG,QD
     Route: 048
     Dates: start: 20120726, end: 20120802
  4. PEGINTRON [Suspect]
     Indication: CHRONIC HEPATITIS C
     Dosage: 1.5 ?G/KG, WEEKLY
     Route: 058
     Dates: start: 20120621, end: 20120725
  5. PEGINTRON [Suspect]
     Dosage: 100 ?G, WEEKLY
     Route: 058
     Dates: start: 20120726, end: 20120726
  6. JANUVIA [Concomitant]
     Dosage: 50 MG, QD
     Route: 048
  7. OLMETEC [Concomitant]
     Dosage: 20 MG, QD
     Route: 048
  8. VOLTAREN [Concomitant]
     Dosage: 50 MG/QD, AS NEEDED
     Route: 051
     Dates: start: 20120622, end: 20120720
  9. VOLTAREN  SR [Concomitant]
     Dosage: 75 MG, QD
     Route: 048
     Dates: start: 20120624, end: 20120808

REACTIONS (1)
  - Anaemia [Recovered/Resolved]
